FAERS Safety Report 10359743 (Version 3)
Quarter: 2016Q4

REPORT INFORMATION
  Report Type: Report from Study
  Country: US (occurrence: US)
  Receive Date: 20140804
  Receipt Date: 20161125
  Transmission Date: 20170206
  Serious: Yes (Other)
  Sender: FDA-Public Use
  Company Number: US-MERCK-1407USA013588

PATIENT

DRUGS (4)
  1. SIROLIMUS. [Suspect]
     Active Substance: SIROLIMUS
     Indication: HODGKIN^S DISEASE REFRACTORY
     Dosage: 1MG-5MG DAILY Q28 DAYS, IN ADVANCED CANCER
     Route: 048
  2. SIROLIMUS. [Suspect]
     Active Substance: SIROLIMUS
     Indication: NEOPLASM MALIGNANT
     Dosage: 4MG IN HODGKIN LYMPHOMA
     Route: 048
  3. ZOLINZA [Suspect]
     Active Substance: VORINOSTAT
     Indication: HODGKIN^S DISEASE REFRACTORY
     Dosage: 100MG-400MG DAILY Q28 DAYS, IN ADVANCED CANCER
     Route: 048
  4. ZOLINZA [Suspect]
     Active Substance: VORINOSTAT
     Indication: NEOPLASM MALIGNANT
     Dosage: 300 MG, UNK
     Route: 048

REACTIONS (1)
  - Thrombocytopenia [Unknown]
